FAERS Safety Report 12635864 (Version 14)
Quarter: 2018Q3

REPORT INFORMATION
  Report Type: Report from Study
  Country: US (occurrence: US)
  Receive Date: 20160809
  Receipt Date: 20180713
  Transmission Date: 20181010
  Serious: Yes (Hospitalization)
  Sender: FDA-Public Use
  Company Number: US-ACTELION-A-US2016-139175

PATIENT
  Age: 60 Year
  Sex: Female
  Weight: 68.93 kg

DRUGS (18)
  1. OPSUMIT [Suspect]
     Active Substance: MACITENTAN
     Indication: PULMONARY ARTERIAL HYPERTENSION
     Dosage: 10 MG, QD
     Route: 048
     Dates: start: 20150305
  2. SILDENAFIL. [Concomitant]
     Active Substance: SILDENAFIL
     Dosage: 20 MG, QD
     Route: 048
  3. WARFARIN [Concomitant]
     Active Substance: WARFARIN
     Dosage: UNK
     Dates: start: 2010
  4. DIGOXIN. [Concomitant]
     Active Substance: DIGOXIN
     Dosage: UNK
     Dates: start: 20150216
  5. LASIX [Concomitant]
     Active Substance: FUROSEMIDE
     Dosage: UNK
     Dates: start: 2010
  6. UPTRAVI [Suspect]
     Active Substance: SELEXIPAG
     Indication: PULMONARY ARTERIAL HYPERTENSION
     Dosage: 400 MCG, BID
     Route: 048
     Dates: start: 20161125
  7. UPTRAVI [Suspect]
     Active Substance: SELEXIPAG
     Dosage: 1200 MCG, UNK
     Route: 048
  8. SPIRONOLACTONE. [Concomitant]
     Active Substance: SPIRONOLACTONE
     Dosage: UNK
     Dates: start: 2010
  9. UPTRAVI [Suspect]
     Active Substance: SELEXIPAG
     Dosage: 400 MCG, BID
     Route: 048
     Dates: start: 20180630
  10. MULTIVITAMIN [Concomitant]
     Active Substance: VITAMINS
  11. UPTRAVI [Suspect]
     Active Substance: SELEXIPAG
     Dosage: 200 MCG, BID
     Route: 048
     Dates: start: 20160812
  12. OXYGEN. [Concomitant]
     Active Substance: OXYGEN
  13. LEVOTHYROXINE. [Concomitant]
     Active Substance: LEVOTHYROXINE
     Dosage: UNK
     Dates: start: 20020725
  14. ACETAMINOPHEN. [Concomitant]
     Active Substance: ACETAMINOPHEN
  15. DOCUSATE SODIUM. [Concomitant]
     Active Substance: DOCUSATE SODIUM
     Dosage: UNK
     Dates: start: 20180403
  16. IRON SUCROSE [Concomitant]
     Active Substance: IRON SUCROSE
     Dosage: UNK
     Route: 042
     Dates: start: 20150403
  17. FERROUS SULFATE. [Concomitant]
     Active Substance: FERROUS SULFATE
     Dosage: UNK
     Dates: start: 20150514
  18. SENNA [Concomitant]
     Active Substance: SENNA LEAF\SENNOSIDES\SENNOSIDES A AND B
     Dosage: UNK
     Dates: start: 20180403

REACTIONS (39)
  - Fluid overload [Recovered/Resolved]
  - Right ventricular failure [Recovered/Resolved]
  - Pain [Recovered/Resolved]
  - Jugular vein distension [Recovered/Resolved]
  - Transfusion [Recovered/Resolved]
  - Pulmonary arterial hypertension [Unknown]
  - Pleural effusion [Unknown]
  - Vertigo positional [Recovered/Resolved]
  - Gastrointestinal haemorrhage [Recovered/Resolved]
  - Occult blood positive [Recovered/Resolved]
  - Hyponatraemia [Recovered/Resolved]
  - Hypochromic anaemia [Not Recovered/Not Resolved]
  - Acute kidney injury [Recovering/Resolving]
  - Fluid retention [Unknown]
  - Influenza like illness [Recovered/Resolved]
  - Haemoglobin decreased [Recovered/Resolved]
  - Gastrointestinal arteriovenous malformation [Recovered/Resolved]
  - Oedema [Unknown]
  - Dizziness postural [Recovered/Resolved]
  - Dysgeusia [Unknown]
  - Haematocrit decreased [Recovered/Resolved]
  - Rectal haemorrhage [Recovered/Resolved]
  - Flushing [Recovered/Resolved]
  - Muscle spasms [Unknown]
  - Cardiac failure acute [Recovered/Resolved]
  - Anaemia [Not Recovered/Not Resolved]
  - Pericardial effusion [Unknown]
  - Tongue haemorrhage [Not Recovered/Not Resolved]
  - Dizziness [Not Recovered/Not Resolved]
  - Helicobacter test positive [Recovered/Resolved]
  - Asthenia [Unknown]
  - Melaena [Recovered/Resolved]
  - Condition aggravated [Unknown]
  - Tongue injury [Not Recovered/Not Resolved]
  - Abdominal pain [Recovered/Resolved]
  - Cardiorenal syndrome [Recovering/Resolving]
  - Anticoagulation drug level above therapeutic [Not Recovered/Not Resolved]
  - Haematochezia [Not Recovered/Not Resolved]
  - Faeces discoloured [Recovered/Resolved]

NARRATIVE: CASE EVENT DATE: 2015
